FAERS Safety Report 16874768 (Version 2)
Quarter: 2019Q4

REPORT INFORMATION
  Report Type: Spontaneous
  Country: US (occurrence: US)
  Receive Date: 20191001
  Receipt Date: 20191023
  Transmission Date: 20200122
  Serious: Yes (Life-Threatening, Hospitalization)
  Sender: FDA-Public Use
  Company Number: US-TEVA-2019-US-1115594

PATIENT
  Age: 76 Year
  Sex: Male

DRUGS (13)
  1. MEGESTROL [Suspect]
     Active Substance: MEGESTROL
     Indication: FAILURE TO THRIVE
     Dosage: ORAL LIQUID
     Route: 048
  2. CLONIDINE. [Concomitant]
     Active Substance: CLONIDINE
     Dosage: 0.1 MG BY MOUTH DAILY
     Route: 048
  3. RIVAROXABAN [Interacting]
     Active Substance: RIVAROXABAN
     Indication: PROPHYLAXIS
     Dosage: AT BEDTIME
     Route: 048
  4. NIFEDIPINE. [Concomitant]
     Active Substance: NIFEDIPINE
     Route: 048
  5. MEGESTROL [Interacting]
     Active Substance: MEGESTROL
     Indication: CEREBROVASCULAR ACCIDENT
     Dosage: RESTARTED AT THE TIME OF DISCHARGE
     Route: 048
  6. BIMATOPROST. [Concomitant]
     Active Substance: BIMATOPROST
     Dosage: 1 DROP INTO BOTH EYES EVERY EVENING
     Route: 047
  7. HYDRALAZINE [Concomitant]
     Active Substance: HYDRALAZINE HYDROCHLORIDE
     Route: 048
  8. GABAPENTIN. [Concomitant]
     Active Substance: GABAPENTIN
     Dosage: THREE TIMES DAILY
     Route: 048
  9. HYDROCHLOROTHIAZIDE. [Concomitant]
     Active Substance: HYDROCHLOROTHIAZIDE
     Route: 048
  10. SIMVASTATIN. [Concomitant]
     Active Substance: SIMVASTATIN
     Dosage: EVERY EVENING
     Route: 048
  11. GLIPIZIDE. [Concomitant]
     Active Substance: GLIPIZIDE
     Route: 048
  12. METOPROLOL TARTRATE. [Concomitant]
     Active Substance: METOPROLOL TARTRATE
     Route: 048
  13. SPIRONOLACTONE. [Suspect]
     Active Substance: SPIRONOLACTONE
     Route: 048

REACTIONS (11)
  - Upper gastrointestinal haemorrhage [Recovering/Resolving]
  - Obstructive airways disorder [Recovering/Resolving]
  - Haematochezia [Recovering/Resolving]
  - Acute respiratory failure [Recovering/Resolving]
  - Syncope [Recovering/Resolving]
  - Anaemia [Recovered/Resolved]
  - Dehydration [Recovering/Resolving]
  - Drug interaction [Unknown]
  - Unresponsive to stimuli [Recovering/Resolving]
  - Hyperkalaemia [Recovering/Resolving]
  - Electrolyte imbalance [Recovering/Resolving]
